FAERS Safety Report 4622750-4 (Version None)
Quarter: 2005Q1

REPORT INFORMATION
  Report Type: 
  Country: None (occurrence: None)
  Receive Date: 20050329
  Receipt Date: 20050329
  Transmission Date: 20050727
  Serious: Yes (Death)
  Sender: FDA-Public Use
  Company Number: None

PATIENT
  Age: 48 Year
  Sex: Male
  Weight: 56.6996 kg

DRUGS (2)
  1. SOTALOL TABLET [Suspect]
     Dosage: ORALLY
     Route: 048
     Dates: start: 20050122, end: 20050123
  2. MAGNESIUM SULFATE [Suspect]
     Indication: DRUG TOXICITY
     Dosage: IV INFUSION
     Route: 042
     Dates: start: 20050123

REACTIONS (7)
  - ARRHYTHMIA [None]
  - ATRIAL FIBRILLATION [None]
  - CARDIOMEGALY [None]
  - ELECTROCARDIOGRAM QT PROLONGED [None]
  - ENDOCARDITIS [None]
  - PHARMACEUTICAL PRODUCT COMPLAINT [None]
  - SUDDEN DEATH [None]
